FAERS Safety Report 18338298 (Version 1)
Quarter: 2020Q4

REPORT INFORMATION
  Report Type: Spontaneous
  Country: CA (occurrence: CA)
  Receive Date: 20201002
  Receipt Date: 20201002
  Transmission Date: 20210113
  Serious: Yes (Disabling)
  Sender: FDA-Public Use
  Company Number: CA-TEVA-2020-CA-1833938

PATIENT
  Age: 73 Year
  Sex: Male
  Weight: 122 kg

DRUGS (4)
  1. ELIQUIS [Concomitant]
     Active Substance: APIXABAN
  2. FLECAINIDE [Concomitant]
     Active Substance: FLECAINIDE
  3. BISOPROLOL [Concomitant]
     Active Substance: BISOPROLOL
  4. TEVA-DILTIAZEM [Suspect]
     Active Substance: DILTIAZEM
     Indication: ATRIAL FIBRILLATION
     Route: 048

REACTIONS (5)
  - Fatigue [Unknown]
  - Pruritus [Unknown]
  - Rash maculo-papular [Unknown]
  - Hypersensitivity [Unknown]
  - Rash pustular [Unknown]
